FAERS Safety Report 6957693-4 (Version None)
Quarter: 2010Q3

REPORT INFORMATION
  Report Type: 
  Country: None (occurrence: None)
  Receive Date: 20100831
  Receipt Date: 20100827
  Transmission Date: 20110219
  Serious: Yes (Death, Other)
  Sender: FDA-Public Use
  Company Number: JP-SANOFI-AVENTIS-2010SA033525

PATIENT
  Age: 78 Year
  Sex: Male
  Weight: 50.8 kg

DRUGS (14)
  1. TAXOTERE [Suspect]
     Indication: PROSTATE CANCER
     Route: 041
     Dates: start: 20100324, end: 20100507
  2. ASTOMIN [Concomitant]
     Indication: BRONCHITIS CHRONIC
     Route: 048
     Dates: end: 20100528
  3. MUCOSOLVAN [Concomitant]
     Indication: BRONCHITIS CHRONIC
     Route: 048
     Dates: end: 20100528
  4. MUCODYNE [Concomitant]
     Indication: BRONCHITIS CHRONIC
     Route: 048
     Dates: end: 20100528
  5. MICARDIS [Concomitant]
     Indication: HYPERTENSION
     Route: 048
     Dates: end: 20100528
  6. NATEGLINIDE [Concomitant]
     Indication: DIABETES MELLITUS
     Route: 048
     Dates: end: 20100528
  7. HYPEN [Concomitant]
     Route: 048
     Dates: end: 20100528
  8. GASTROM [Concomitant]
     Route: 048
     Dates: end: 20100528
  9. NEUROTROPIN [Concomitant]
     Dosage: DOSE:8 UNIT(S)
     Route: 048
     Dates: end: 20100528
  10. OPALMON [Concomitant]
     Indication: SPINAL COLUMN STENOSIS
     Route: 048
     Dates: end: 20100528
  11. METHYCOBAL [Concomitant]
     Indication: SPINAL COLUMN STENOSIS
     Route: 048
     Dates: end: 20100528
  12. PREDONINE [Concomitant]
     Indication: PROSTATE CANCER
     Route: 048
     Dates: end: 20100528
  13. HARNAL [Concomitant]
     Route: 048
     Dates: end: 20100528
  14. PAZUFLOXACIN [Concomitant]
     Dates: start: 20100528

REACTIONS (14)
  - ATRIAL FIBRILLATION [None]
  - BLOOD BETA-D-GLUCAN INCREASED [None]
  - BLOOD PRESSURE DECREASED [None]
  - C-REACTIVE PROTEIN INCREASED [None]
  - DISSEMINATED INTRAVASCULAR COAGULATION [None]
  - HALLUCINATION [None]
  - INSOMNIA [None]
  - INTERSTITIAL LUNG DISEASE [None]
  - OXYGEN SATURATION DECREASED [None]
  - PNEUMOMEDIASTINUM [None]
  - PNEUMONIA BACTERIAL [None]
  - PNEUMOTHORAX [None]
  - STAPHYLOCOCCAL INFECTION [None]
  - SUBCUTANEOUS EMPHYSEMA [None]
